FAERS Safety Report 9316541 (Version 1)
Quarter: 2013Q2

REPORT INFORMATION
  Report Type: Spontaneous
  Country: US (occurrence: US)
  Receive Date: 20130530
  Receipt Date: 20130530
  Transmission Date: 20140414
  Serious: No
  Sender: FDA-Public Use
  Company Number: US-PFIZER INC-2013163710

PATIENT
  Age: 90 Year
  Sex: Male
  Weight: 68.03 kg

DRUGS (3)
  1. GABAPENTIN [Suspect]
     Dosage: 600 MG, FIVE TIMES DAILY
  2. GABAPENTIN [Suspect]
     Dosage: ^TAKES TOO MUCH^
  3. GABAPENTIN [Suspect]
     Dosage: 300 MG, 4X/DAY

REACTIONS (2)
  - Overdose [Unknown]
  - Diplopia [Recovered/Resolved]
